FAERS Safety Report 5611326-8 (Version None)
Quarter: 2008Q1

REPORT INFORMATION
  Report Type: 
  Country: None (occurrence: None)
  Receive Date: 20080201
  Receipt Date: 20080122
  Transmission Date: 20080703
  Serious: Yes (Other)
  Sender: FDA-Public Use
  Company Number: US-PFIZER INC-2007099820

PATIENT
  Sex: Female
  Weight: 104.3 kg

DRUGS (8)
  1. CHANTIX [Suspect]
     Indication: SMOKING CESSATION THERAPY
     Route: 048
     Dates: start: 20071030, end: 20071109
  2. MEDROL [Suspect]
  3. VERAPAMIL [Concomitant]
  4. FLUCONAZOLE [Concomitant]
  5. ALBUTEROL [Concomitant]
     Route: 055
  6. ADVAIR DISKUS 100/50 [Concomitant]
  7. PREDNISONE TAB [Concomitant]
  8. PERCOCET [Concomitant]

REACTIONS (7)
  - DRUG HYPERSENSITIVITY [None]
  - DYSARTHRIA [None]
  - DYSPNOEA [None]
  - FATIGUE [None]
  - MEMORY IMPAIRMENT [None]
  - SOMNOLENCE [None]
  - WEIGHT INCREASED [None]
